FAERS Safety Report 4610535-4 (Version None)
Quarter: 2005Q1

REPORT INFORMATION
  Report Type: 
  Country: None (occurrence: None)
  Receive Date: 20050316
  Receipt Date: 20050308
  Transmission Date: 20050727
  Serious: Yes (Other)
  Sender: FDA-Public Use
  Company Number: 2005NV000018

PATIENT
  Age: 54 Year
  Sex: Female
  Weight: 58.9676 kg

DRUGS (8)
  1. GYNODIOL [Suspect]
     Indication: MENOPAUSAL SYMPTOMS
     Dosage: 1 MG; BID
     Dates: start: 20050223, end: 20050227
  2. STEROID THERAPY [Suspect]
     Indication: ASTHMA
  3. ANACIN [Suspect]
     Dosage: 2 DFL; BID;
  4. NASAREL [Concomitant]
  5. ADVAIR DISKUS 100/50 [Concomitant]
  6. PREDNISONE [Concomitant]
  7. MUCINEX [Concomitant]
  8. ESTROGENS [Concomitant]

REACTIONS (5)
  - ASTHENIA [None]
  - CEREBROVASCULAR ACCIDENT [None]
  - DYSARTHRIA [None]
  - MUSCLE SPASMS [None]
  - PARAESTHESIA [None]
